FAERS Safety Report 8022398-8 (Version None)
Quarter: 2012Q1

REPORT INFORMATION
  Report Type: 
  Country: None (occurrence: None)
  Receive Date: 20120104
  Receipt Date: 20111229
  Transmission Date: 20120608
  Serious: Yes (Life-Threatening, Hospitalization, Other)
  Sender: FDA-Public Use
  Company Number: DE-ROCHE-788632

PATIENT
  Sex: Male
  Weight: 78 kg

DRUGS (20)
  1. BENDAMUSTINE [Suspect]
     Dates: start: 20110531, end: 20110630
  2. AMIODARONE HCL [Concomitant]
  3. BISOPROLOL [Concomitant]
  4. TAMSULOSIN HCL [Concomitant]
  5. MOVIPREP [Concomitant]
     Dosage: FORM: SACHET
  6. MABTHERA [Suspect]
     Indication: NON-HODGKIN'S LYMPHOMA
     Dosage: DOSAGE FORM : INFUSION
     Route: 042
     Dates: start: 20110405, end: 20110414
  7. PANTOPRAZOLE [Concomitant]
  8. TORSEMIDE [Concomitant]
  9. PLETAL [Concomitant]
  10. ALDACTONE [Concomitant]
  11. MABTHERA [Suspect]
  12. BENDAMUSTINE [Suspect]
     Indication: NON-HODGKIN'S LYMPHOMA
     Dosage: LAST DOSE: 29 JUN 2011
     Route: 042
  13. BENDAMUSTINE [Suspect]
     Dates: start: 20110809, end: 20110819
  14. BRILIQUE [Concomitant]
  15. DOMPERIDONE [Concomitant]
  16. GENERIC COMPONENT(S) NOT KNOWN [Concomitant]
  17. MABTHERA [Suspect]
     Dosage: LAST DOSE: 29 JUN 2011
     Dates: start: 20110531, end: 20110630
  18. RAMIPRIL [Concomitant]
     Dosage: 1.25 MG
  19. TICAGRELOR [Concomitant]
  20. DOMPERIDON [Concomitant]

REACTIONS (4)
  - DYSGEUSIA [None]
  - INFECTION [None]
  - HYPOTENSION [None]
  - MYOCARDIAL INFARCTION [None]
